FAERS Safety Report 24627196 (Version 2)
Quarter: 2025Q3

REPORT INFORMATION
  Report Type: Report from Study
  Country: ZA (occurrence: ZA)
  Receive Date: 20241116
  Receipt Date: 20250809
  Transmission Date: 20251020
  Serious: Yes (Hospitalization)
  Sender: ALEXION PHARMACEUTICALS
  Company Number: ZA-AstraZeneca-CH-00716616A

PATIENT
  Age: 78 Year
  Sex: Female

DRUGS (8)
  1. DAPAGLIFLOZIN [Suspect]
     Active Substance: DAPAGLIFLOZIN
     Route: 065
  2. SIMVASTATIN [Concomitant]
     Active Substance: SIMVASTATIN
     Route: 065
  3. Wart magic [Concomitant]
     Route: 065
  4. ALDACTONE [Concomitant]
     Active Substance: SPIRONOLACTONE
     Route: 065
  5. WARFARIN [Concomitant]
     Active Substance: WARFARIN
     Route: 065
  6. PREDNISONE [Concomitant]
     Active Substance: PREDNISONE
     Route: 065
  7. LASIX [Concomitant]
     Active Substance: FUROSEMIDE
     Route: 065
  8. FOSFOMYCIN TROMETHAMINE [Concomitant]
     Active Substance: FOSFOMYCIN TROMETHAMINE
     Route: 065

REACTIONS (1)
  - Cellulitis [Unknown]
